FAERS Safety Report 6184462-8 (Version None)
Quarter: 2009Q2

REPORT INFORMATION
  Report Type: 
  Country: None (occurrence: None)
  Receive Date: 20090507
  Receipt Date: 20090507
  Transmission Date: 20091009
  Serious: No
  Sender: FDA-Public Use
  Company Number: None

PATIENT
  Age: 60 Year
  Sex: Female
  Weight: 89.8122 kg

DRUGS (1)
  1. ROPINIROLE [Suspect]
     Indication: RESTLESS LEGS SYNDROME
     Dosage: 2 MG ONCE HS PO
     Route: 048
     Dates: start: 20090313

REACTIONS (2)
  - DRUG INEFFECTIVE [None]
  - PRODUCT SUBSTITUTION ISSUE [None]
